FAERS Safety Report 23644799 (Version 4)
Quarter: 2024Q2

REPORT INFORMATION
  Report Type: Report from Study
  Country: US (occurrence: US)
  Receive Date: 20240318
  Receipt Date: 20240514
  Transmission Date: 20240716
  Serious: Yes (Hospitalization)
  Sender: FDA-Public Use
  Company Number: US-BoehringerIngelheim-2023-BI-234312

PATIENT
  Age: 81 Year
  Sex: Male

DRUGS (2)
  1. OFEV [Suspect]
     Active Substance: NINTEDANIB
     Indication: Idiopathic pulmonary fibrosis
     Route: 048
     Dates: start: 20191219
  2. OFEV [Suspect]
     Active Substance: NINTEDANIB
     Route: 048
     Dates: start: 2023

REACTIONS (16)
  - Pneumonia [Recovering/Resolving]
  - Influenza [Not Recovered/Not Resolved]
  - Weight decreased [Unknown]
  - Pneumonia [Recovered/Resolved]
  - Diarrhoea [Recovered/Resolved]
  - Flatulence [Not Recovered/Not Resolved]
  - Flatulence [Recovered/Resolved]
  - Weight decreased [Not Recovered/Not Resolved]
  - Diarrhoea [Unknown]
  - Haemorrhage [Unknown]
  - Faeces discoloured [Not Recovered/Not Resolved]
  - Cough [Recovering/Resolving]
  - Flatulence [Not Recovered/Not Resolved]
  - Visual impairment [Not Recovered/Not Resolved]
  - Abdominal distension [Not Recovered/Not Resolved]
  - Drug ineffective [Unknown]

NARRATIVE: CASE EVENT DATE: 20230101
